FAERS Safety Report 6088984-X (Version None)
Quarter: 2009Q1

REPORT INFORMATION
  Report Type: 
  Country: None (occurrence: None)
  Receive Date: 20090224
  Receipt Date: 20090124
  Transmission Date: 20090719
  Serious: No
  Sender: FDA-Public Use
  Company Number: US-BAYER-200911846NA

PATIENT
  Age: 39 Year
  Sex: Female
  Weight: 64 kg

DRUGS (1)
  1. CIPRO [Suspect]
     Indication: INFECTION
     Dosage: UNIT DOSE: 500 MG
     Dates: start: 20090123

REACTIONS (2)
  - MUSCLE SPASMS [None]
  - PALPITATIONS [None]
